FAERS Safety Report 8616715-5 (Version None)
Quarter: 2012Q3

REPORT INFORMATION
  Report Type: 
  Country: None (occurrence: None)
  Receive Date: 20120823
  Receipt Date: 20120802
  Transmission Date: 20120928
  Serious: No
  Sender: FDA-Public Use
  Company Number: US-009507513-1208USA002418

PATIENT

DRUGS (7)
  1. ATARAX (ALPRAZOLAM) [Concomitant]
  2. CELEXA [Concomitant]
  3. VICTRELIS [Suspect]
     Indication: HEPATITIS C
     Dosage: 200 MG, TID
     Route: 048
     Dates: start: 20120504
  4. OMEPRAZOLE [Concomitant]
  5. VOLTAREN [Concomitant]
  6. LORAZEPAM [Concomitant]
  7. ONDANSETRON [Concomitant]

REACTIONS (3)
  - VOMITING [None]
  - WEIGHT DECREASED [None]
  - NAUSEA [None]
